FAERS Safety Report 8707608 (Version 2)
Quarter: 2012Q4

REPORT INFORMATION
  Report Type: 
  Country: US (occurrence: US)
  Receive Date: 20120805
  Receipt Date: 20120928
  Transmission Date: 20130627
  Serious: No
  Sender: FDA-Public Use
  Company Number: US-009507513-1207USA011603

PATIENT

DRUGS (3)
  1. ISENTRESS [Suspect]
     Indication: HIV INFECTION
     Dosage: 400 mg, bid
     Route: 048
     Dates: start: 2008
  2. SUSTIVA [Concomitant]
     Route: 048
  3. VIREAD [Concomitant]

REACTIONS (2)
  - Viral load increased [Unknown]
  - Drug dose omission [Unknown]
